FAERS Safety Report 9770359 (Version 1)
Quarter: 2013Q4

REPORT INFORMATION
  Report Type: Spontaneous
  Country: FR (occurrence: FR)
  Receive Date: 20131218
  Receipt Date: 20131218
  Transmission Date: 20140711
  Serious: Yes (Other)
  Sender: FDA-Public Use
  Company Number: FR-BRISTOL-MYERS SQUIBB COMPANY-19914555

PATIENT
  Age: 78 Year
  Sex: Female

DRUGS (4)
  1. TAXOL INJ [Suspect]
     Indication: BREAST CANCER
     Route: 042
     Dates: start: 20131001
  2. POLARAMINE [Concomitant]
  3. RANIPLEX [Concomitant]
  4. ZOPHREN [Concomitant]

REACTIONS (3)
  - Hypersensitivity [Recovered/Resolved]
  - Breakthrough pain [Recovered/Resolved]
  - Bronchospasm [Recovered/Resolved]
